FAERS Safety Report 11344743 (Version 3)
Quarter: 2015Q4

REPORT INFORMATION
  Report Type: Spontaneous
  Country: JP (occurrence: JP)
  Receive Date: 20150806
  Receipt Date: 20151102
  Transmission Date: 20160304
  Serious: Yes (Death, Other)
  Sender: FDA-Public Use
  Company Number: JP-PFIZER INC-2015259481

PATIENT
  Age: 97 Year
  Sex: Male
  Weight: 41 kg

DRUGS (9)
  1. BISOLVON [Concomitant]
     Active Substance: BROMHEXINE HYDROCHLORIDE
     Dosage: UNK
     Dates: start: 20150728
  2. SOLDEM 1 [Concomitant]
     Active Substance: DEXTROSE\SODIUM CHLORIDE\SODIUM LACTATE
     Dosage: UNK
     Dates: start: 20150730
  3. CERCINE [Concomitant]
     Active Substance: DIAZEPAM
     Indication: EPILEPSY
     Dosage: 3 MG, UNK
     Dates: start: 20150730
  4. CEFAZOLIN [Concomitant]
     Active Substance: CEFAZOLIN
     Indication: PNEUMONIA
     Dosage: 1 G, 2X/DAY
     Dates: start: 20150728, end: 20150730
  5. TAKEPRON [Concomitant]
     Active Substance: LANSOPRAZOLE
     Indication: GASTRIC ULCER
     Dosage: 30 MG, 2X/DAY
     Dates: start: 20150728, end: 20150730
  6. FOSPHENYTOIN SODIUM. [Suspect]
     Active Substance: FOSPHENYTOIN SODIUM
     Indication: EPILEPSY
  7. ADONA [Concomitant]
     Active Substance: CARBAZOCHROME SODIUM SULFONATE
     Dosage: UNK
     Dates: start: 20150730
  8. FOSPHENYTOIN SODIUM. [Suspect]
     Active Substance: FOSPHENYTOIN SODIUM
     Indication: STATUS EPILEPTICUS
     Dosage: 12 ML, UNK
     Route: 042
     Dates: start: 20150730, end: 20150730
  9. PHYSIO 35 [Concomitant]
     Active Substance: ELECTROLYTES NOS
     Dosage: 500 ML, 2X/DAY
     Dates: start: 20150729, end: 20150730

REACTIONS (7)
  - Blood pressure decreased [Fatal]
  - Circulatory collapse [Fatal]
  - Metabolic acidosis [Unknown]
  - Shock [Fatal]
  - Respiratory failure [Unknown]
  - Multi-organ failure [Unknown]
  - Alanine aminotransferase increased [Unknown]

NARRATIVE: CASE EVENT DATE: 20150730
